FAERS Safety Report 7311629-5 (Version None)
Quarter: 2011Q1

REPORT INFORMATION
  Report Type: 
  Country: None (occurrence: None)
  Receive Date: 20110224
  Receipt Date: 20110215
  Transmission Date: 20110831
  Serious: Yes (Disabling, Other)
  Sender: FDA-Public Use
  Company Number: US-CEPHALON-2011000425

PATIENT
  Age: 48 Year
  Sex: Female

DRUGS (2)
  1. PROVIGIL [Suspect]
     Indication: SLEEP APNOEA SYNDROME
     Route: 048
  2. PROVIGIL [Suspect]
     Route: 048

REACTIONS (24)
  - PULMONARY OEDEMA [None]
  - TYPE 2 DIABETES MELLITUS [None]
  - NEUROPATHY PERIPHERAL [None]
  - CONDUCTIVE DEAFNESS [None]
  - DYSPNOEA [None]
  - CHEST PAIN [None]
  - MENTAL DISORDER [None]
  - CHRONIC OBSTRUCTIVE PULMONARY DISEASE [None]
  - FIBROMYALGIA [None]
  - PLANTAR FASCIITIS [None]
  - PANIC DISORDER [None]
  - DIABETIC RETINOPATHY [None]
  - BLOOD CHOLESTEROL ABNORMAL [None]
  - DRUG INEFFECTIVE [None]
  - COLON CANCER [None]
  - STAPHYLOCOCCAL INFECTION [None]
  - PAIN IN EXTREMITY [None]
  - ARTHRALGIA [None]
  - FATIGUE [None]
  - BLOOD PRESSURE ABNORMAL [None]
  - LOSS OF CONSCIOUSNESS [None]
  - PERIPHERAL ARTERIAL OCCLUSIVE DISEASE [None]
  - BLOOD TRIGLYCERIDES ABNORMAL [None]
  - STRESS [None]
